FAERS Safety Report 20865998 (Version 1)
Quarter: 2022Q2

REPORT INFORMATION
  Report Type: Spontaneous
  Country: JP (occurrence: JP)
  Receive Date: 20220524
  Receipt Date: 20220524
  Transmission Date: 20220721
  Serious: Yes (Other)
  Sender: FDA-Public Use
  Company Number: JP-SUN PHARMACEUTICAL INDUSTRIES LTD-2022RR-337999

PATIENT
  Age: 64 Year
  Sex: Female

DRUGS (3)
  1. ANASTROZOLE [Suspect]
     Active Substance: ANASTROZOLE
     Indication: Breast cancer stage II
     Dosage: 1 MILLIGRAM, DAILY
     Route: 065
  2. LETROZOLE [Suspect]
     Active Substance: LETROZOLE
     Indication: Breast cancer stage II
     Dosage: 2.5 MILLIGRAM, DAILY
     Route: 065
  3. ABEMACICLIB [Concomitant]
     Active Substance: ABEMACICLIB
     Indication: Breast cancer stage II
     Dosage: 300 MILLIGRAM, DAILY
     Route: 065

REACTIONS (2)
  - Metastases to lung [Unknown]
  - Therapeutic product effect incomplete [Unknown]
